FAERS Safety Report 15284929 (Version 1)
Quarter: 2018Q3

REPORT INFORMATION
  Report Type: Spontaneous
  Country: DE (occurrence: DE)
  Receive Date: 20180816
  Receipt Date: 20180816
  Transmission Date: 20181010
  Serious: Yes (Other)
  Sender: FDA-Public Use
  Company Number: DE-AMGEN-DEUSP2018087426

PATIENT
  Age: 69 Year
  Sex: Male
  Weight: 76.5 kg

DRUGS (3)
  1. MIMPARA [Concomitant]
     Active Substance: CINACALCET HYDROCHLORIDE
     Indication: HYPERPARATHYROIDISM SECONDARY
     Dosage: UNK
     Dates: start: 20180418
  2. PARSABIV [Suspect]
     Active Substance: ETELCALCETIDE HYDROCHLORIDE
     Indication: HYPERPARATHYROIDISM SECONDARY
     Dosage: 2.5 MG, 3 TIMES/WK
     Route: 058
     Dates: start: 20171122, end: 20180119
  3. PARSABIV [Suspect]
     Active Substance: ETELCALCETIDE HYDROCHLORIDE
     Indication: BLOOD PARATHYROID HORMONE INCREASED
     Dosage: 5 MG, 3 TIMES/WK
     Route: 058
     Dates: start: 2018, end: 20180418

REACTIONS (5)
  - Blood calcium increased [Unknown]
  - Drug ineffective [Unknown]
  - Underdose [Unknown]
  - Incorrect route of drug administration [Unknown]
  - Blood parathyroid hormone increased [Recovered/Resolved]

NARRATIVE: CASE EVENT DATE: 20171122
